FAERS Safety Report 7538758-5 (Version None)
Quarter: 2011Q2

REPORT INFORMATION
  Report Type: 
  Country: None (occurrence: None)
  Receive Date: 20110610
  Receipt Date: 20090316
  Transmission Date: 20111010
  Serious: Yes (Hospitalization, Other)
  Sender: FDA-Public Use
  Company Number: US-BAYER-200916267NA

PATIENT
  Age: 56 Year
  Sex: Male
  Weight: 82 kg

DRUGS (11)
  1. LIPITOR [Concomitant]
     Dosage: 20MG DAILY
     Route: 048
     Dates: end: 20030502
  2. HEPARIN [Concomitant]
     Dosage: 8 + 20 UNIT BOLUS
     Route: 042
     Dates: start: 20030502, end: 20030502
  3. LOTENSIN [Concomitant]
     Dosage: 20MG DAILY
     Route: 048
     Dates: end: 20030502
  4. HEPARIN [Concomitant]
     Dosage: 26000 UNITS
     Route: 042
     Dates: start: 20030503, end: 20030503
  5. NITROGLYCERIN [Concomitant]
     Dosage: 10 MCG
     Route: 042
     Dates: start: 20030503, end: 20030503
  6. ACETYLSALICYLIC ACID SRT [Concomitant]
     Dosage: 325 MG
     Route: 048
     Dates: start: 20030502, end: 20030502
  7. REGULAR INSULIN [Concomitant]
     Dosage: 4 UNITS THREE TIMES A DAY, LONG TERM
     Route: 042
  8. PLAVIX [Concomitant]
     Dosage: 75MG
     Route: 048
     Dates: start: 20030502, end: 20030502
  9. TRASYLOL [Suspect]
     Indication: CORONARY ARTERY BYPASS
     Dosage: 50 CC BOLUS, THEN 50 CC PER HOUR
     Route: 042
     Dates: start: 20030503, end: 20030503
  10. ESMOLOL [Concomitant]
     Dosage: 40MCG
     Dates: start: 20030503, end: 20030503
  11. VANCOMYCIN [Concomitant]
     Dosage: 1000 MG
     Route: 042
     Dates: start: 20030502, end: 20030513

REACTIONS (12)
  - UNEVALUABLE EVENT [None]
  - MULTI-ORGAN FAILURE [None]
  - EMOTIONAL DISTRESS [None]
  - RENAL IMPAIRMENT [None]
  - FEAR [None]
  - RENAL INJURY [None]
  - PAIN [None]
  - INJURY [None]
  - STRESS [None]
  - ANXIETY [None]
  - ANHEDONIA [None]
  - CEREBROVASCULAR ACCIDENT [None]
